FAERS Safety Report 5382070-X (Version None)
Quarter: 2007Q2

REPORT INFORMATION
  Report Type: 
  Country: None (occurrence: None)
  Receive Date: 20070629
  Receipt Date: 20070319
  Transmission Date: 20071010
  Serious: Yes (Death)
  Sender: FDA-Public Use
  Company Number: PHEH2007US03246

PATIENT
  Age: 22 Year
  Sex: Male
  Weight: 44.4 kg

DRUGS (1)
  1. EXJADE [Suspect]
     Indication: IRON OVERLOAD
     Dosage: 750 MG, QD
     Dates: start: 20060530

REACTIONS (1)
  - IRON OVERLOAD [None]
